FAERS Safety Report 7435392-2 (Version None)
Quarter: 2011Q2

REPORT INFORMATION
  Report Type: 
  Country: None (occurrence: None)
  Receive Date: 20110415
  Receipt Date: 20110329
  Transmission Date: 20111010
  Serious: Yes (Disabling, Other)
  Sender: FDA-Public Use
  Company Number: 2011MA003376

PATIENT

DRUGS (1)
  1. METOCLOPRAMIDE [Suspect]

REACTIONS (13)
  - MOVEMENT DISORDER [None]
  - IMPAIRED WORK ABILITY [None]
  - AKATHISIA [None]
  - TARDIVE DYSKINESIA [None]
  - EMOTIONAL DISORDER [None]
  - ECONOMIC PROBLEM [None]
  - METABOLIC DISORDER [None]
  - DEPRESSION [None]
  - DYSTONIA [None]
  - NERVOUS SYSTEM DISORDER [None]
  - PAIN [None]
  - VISUAL IMPAIRMENT [None]
  - SUICIDAL IDEATION [None]
